FAERS Safety Report 25918061 (Version 1)
Quarter: 2025Q4

REPORT INFORMATION
  Report Type: Spontaneous
  Country: US (occurrence: US)
  Receive Date: 20251014
  Receipt Date: 20251014
  Transmission Date: 20260118
  Serious: No
  Sender: DR REDDYS
  Company Number: US-DRL-USA-USA/2025/10/015131

PATIENT

DRUGS (1)
  1. HABITROL NICOTINE POLACRILEX LOZENGE MINT [Suspect]
     Active Substance: NICOTINE
     Indication: Nicotine dependence
     Route: 065

REACTIONS (1)
  - Condition aggravated [Unknown]
